FAERS Safety Report 19899524 (Version 1)
Quarter: 2021Q3

REPORT INFORMATION
  Report Type: Spontaneous
  Country: FR (occurrence: FR)
  Receive Date: 20210930
  Receipt Date: 20210930
  Transmission Date: 20211014
  Serious: Yes (Hospitalization)
  Sender: FDA-Public Use
  Company Number: FR-IPSEN BIOPHARMACEUTICALS, INC.-2021-23219

PATIENT
  Age: 46 Year
  Sex: Female

DRUGS (5)
  1. LAROXYL DROPS [Concomitant]
  2. MAGNESIUM B6 [Concomitant]
  3. LYRICA [Concomitant]
     Active Substance: PREGABALIN
  4. PHOSPHONEUROS [Concomitant]
     Active Substance: CALCIUM PHOSPHATE, DIBASIC, ANHYDROUS\MAGNESIUM GLYCEROPHOSPHATE\PHOSPHORIC ACID\SODIUM PHOSPHATE, DIBASIC
  5. DYSPORT [Suspect]
     Active Substance: ABOBOTULINUMTOXINA
     Indication: BLEPHAROSPASM
     Dosage: 1 DOSAGE FORMS
     Route: 065
     Dates: start: 20210909, end: 20210909

REACTIONS (2)
  - Abdominal pain [Recovering/Resolving]
  - Vertigo [Recovering/Resolving]

NARRATIVE: CASE EVENT DATE: 20210909
